FAERS Safety Report 5408708-6 (Version None)
Quarter: 2007Q3

REPORT INFORMATION
  Report Type: 
  Country: None (occurrence: None)
  Receive Date: 20070808
  Receipt Date: 20070803
  Transmission Date: 20080115
  Serious: Yes (Other)
  Sender: FDA-Public Use
  Company Number: A0668144A

PATIENT
  Sex: Male

DRUGS (5)
  1. COREG CR [Suspect]
     Indication: HYPERTENSION
     Dosage: 40MG PER DAY
     Route: 048
     Dates: start: 20070101, end: 20070724
  2. COREG [Suspect]
     Indication: HYPERTENSION
     Route: 048
  3. TICLID [Concomitant]
  4. HYTRIN [Concomitant]
  5. ACE INHIBITOR [Concomitant]

REACTIONS (4)
  - ANGIOEDEMA [None]
  - DIZZINESS [None]
  - DYSARTHRIA [None]
  - FATIGUE [None]
